FAERS Safety Report 23292585 (Version 1)
Quarter: 2023Q4

REPORT INFORMATION
  Report Type: Spontaneous
  Country: US (occurrence: None)
  Receive Date: 20231212
  Receipt Date: 20231212
  Transmission Date: 20240110
  Serious: Yes (Disabling, Other)
  Sender: FDA-Public Use
  Company Number: None

PATIENT
  Age: 31 Year
  Sex: Female
  Weight: 43.2 kg

DRUGS (8)
  1. SLYND [Suspect]
     Active Substance: DROSPIRENONE
     Indication: Contraception
     Dosage: FREQUENCY : DAILY;?
     Route: 048
     Dates: start: 20231205, end: 20231211
  2. EMGALITY [Concomitant]
     Active Substance: GALCANEZUMAB-GNLM
  3. NURTEC ODT [Concomitant]
     Active Substance: RIMEGEPANT SULFATE
  4. NUVARING [Concomitant]
     Active Substance: ETHINYL ESTRADIOL\ETONOGESTREL
  5. Momantasone fluorate nasal spray [Concomitant]
  6. VITAMIN C [Concomitant]
     Active Substance: ASCORBIC ACID
  7. VITAMIN D [Concomitant]
     Active Substance: VITAMIN D NOS
  8. CholestOff Plus [Concomitant]

REACTIONS (8)
  - Rash [None]
  - Rash [None]
  - Rash [None]
  - Dermatitis contact [None]
  - Drug ineffective [None]
  - Rash erythematous [None]
  - Throat irritation [None]
  - Therapy cessation [None]

NARRATIVE: CASE EVENT DATE: 20231208
